FAERS Safety Report 12986254 (Version 2)
Quarter: 2016Q4

REPORT INFORMATION
  Report Type: Spontaneous
  Country: BR (occurrence: BR)
  Receive Date: 20161130
  Receipt Date: 20161219
  Transmission Date: 20170207
  Serious: Yes (Other)
  Sender: FDA-Public Use
  Company Number: BR-SA-2016SA216408

PATIENT
  Age: 78 Year
  Sex: Female

DRUGS (8)
  1. BROMOPRIDE [Concomitant]
     Active Substance: BROMOPRIDE
     Route: 042
     Dates: start: 20161110, end: 20161112
  2. CLEXANE [Suspect]
     Active Substance: ENOXAPARIN SODIUM
     Indication: THROMBOSIS PROPHYLAXIS
     Route: 058
     Dates: start: 20161108, end: 20161110
  3. PURAN [Concomitant]
     Active Substance: LEVOTHYROXINE SODIUM
     Route: 048
  4. KEFAZOL [Concomitant]
     Active Substance: CEFAZOLIN SODIUM
     Dosage: 2 DOSAGE FORMS EVERY 8 HOURS
     Route: 042
     Dates: start: 20161108, end: 20161112
  5. VITAMIN K [Concomitant]
     Active Substance: PHYTONADIONE
     Dosage: VITAMIN K+DISTILLED WATER
     Route: 042
     Dates: start: 20161110, end: 20161112
  6. TRAMAL [Concomitant]
     Active Substance: TRAMADOL
     Dosage: TRAMAL+SALINE SOLUTION?FREQUENCY: EVERY 6 HOURS ON 1 HOUR
     Route: 042
     Dates: start: 20161108, end: 20161112
  7. NOVALGIN [Concomitant]
     Active Substance: METAMIZOLE SODIUM
     Route: 042
     Dates: start: 20161110, end: 20161112
  8. ANTAK [Concomitant]
     Active Substance: RANITIDINE HYDROCHLORIDE
     Dosage: 1 AMPOULE
     Route: 042
     Dates: start: 20161108, end: 20161112

REACTIONS (2)
  - Thrombocytopenia [Recovering/Resolving]
  - International normalised ratio abnormal [Recovering/Resolving]

NARRATIVE: CASE EVENT DATE: 20161110
